FAERS Safety Report 10451162 (Version 2)
Quarter: 2014Q4

REPORT INFORMATION
  Report Type: Spontaneous
  Country: US (occurrence: US)
  Receive Date: 20140912
  Receipt Date: 20141218
  Transmission Date: 20150528
  Serious: No
  Sender: FDA-Public Use
  Company Number: US-GALDERMA-US14003110

PATIENT
  Sex: Female

DRUGS (9)
  1. CERAVE AM FACIAL MOISTURIZING LOTION WITH SPF [Concomitant]
     Indication: DRY SKIN PROPHYLAXIS
     Route: 061
     Dates: start: 20140701
  2. MIRVASO [Suspect]
     Active Substance: BRIMONIDINE TARTRATE
     Indication: ROSACEA
     Dosage: 0.33%
     Route: 061
     Dates: start: 20140707, end: 20140719
  3. LA ROCHE-POSAY REDERMIC C [Concomitant]
     Route: 061
  4. VILHY DERMA BLEND CORRECTIVE FOUNDATION [Concomitant]
     Route: 061
  5. MIRVASO [Suspect]
     Active Substance: BRIMONIDINE TARTRATE
     Indication: ROSACEA
  6. LA ROCHE-POSAY EYE ACTIVE C [Concomitant]
     Route: 061
  7. LA ROCHE-POSAY CLEANSER [Concomitant]
     Indication: THERAPEUTIC SKIN CARE TOPICAL
     Route: 061
     Dates: start: 20140701
  8. CERAVE AM FACIAL MOISTURIZING LOTION WITH SPF [Concomitant]
     Indication: PROPHYLAXIS AGAINST SOLAR RADIATION
  9. LA ROCHE-POSAY ANTHELIOS MOISTURIZER [Concomitant]
     Route: 061

REACTIONS (2)
  - Condition aggravated [Recovering/Resolving]
  - Erythema [Recovering/Resolving]
